FAERS Safety Report 7757521-3 (Version None)
Quarter: 2011Q3

REPORT INFORMATION
  Report Type: 
  Country: None (occurrence: None)
  Receive Date: 20110916
  Receipt Date: 20110913
  Transmission Date: 20111222
  Serious: Yes (Death, Hospitalization, Disabling, Other)
  Sender: FDA-Public Use
  Company Number: JP-ROCHE-752800

PATIENT
  Sex: Male

DRUGS (41)
  1. SANDIMMUNE [Suspect]
     Route: 041
     Dates: start: 20101001, end: 20101003
  2. SANDIMMUNE [Suspect]
     Route: 041
     Dates: start: 20101004, end: 20101007
  3. DEXAMETHASONE [Suspect]
     Route: 041
     Dates: start: 20101201, end: 20101210
  4. NEORAL [Suspect]
     Route: 048
     Dates: start: 20101013, end: 20101119
  5. IBRUPROFEN [Concomitant]
     Route: 048
  6. DEXAMETHASONE [Suspect]
     Route: 041
     Dates: start: 20101001, end: 20101012
  7. DEXAMETHASONE [Suspect]
     Route: 041
     Dates: start: 20101119, end: 20101124
  8. DEXAMETHASONE [Suspect]
     Route: 041
     Dates: start: 20101221, end: 20101227
  9. DEXAMETHASONE [Suspect]
     Route: 041
     Dates: start: 20110124
  10. DEXAMETHASONE [Suspect]
     Route: 041
     Dates: start: 20101013, end: 20101017
  11. NEORAL [Suspect]
     Route: 048
     Dates: start: 20101008, end: 20101012
  12. ENALAPRIL MALEATE [Concomitant]
     Route: 048
     Dates: start: 20101008, end: 20110103
  13. URSO 250 [Concomitant]
     Route: 048
     Dates: start: 20101211, end: 20110103
  14. TOCILIZUMAB [Suspect]
     Route: 041
     Dates: start: 20101116, end: 20101116
  15. PREDNISOLONE [Suspect]
     Dosage: PERORAL AGENT
     Route: 048
     Dates: start: 20100910, end: 20100914
  16. DEXAMETHASONE [Suspect]
     Route: 041
     Dates: start: 20100924, end: 20100930
  17. DEXAMETHASONE [Suspect]
     Route: 041
     Dates: start: 20101211, end: 20101220
  18. NEORAL [Suspect]
     Dosage: PERORAL LIQUID PREPARATION
     Route: 048
     Dates: start: 20101004, end: 20101007
  19. NEORAL [Suspect]
     Route: 048
     Dates: start: 20101211, end: 20110104
  20. SANDIMMUNE [Suspect]
     Route: 041
     Dates: start: 20101013, end: 20101119
  21. DEXAMETHASONE [Suspect]
     Route: 041
     Dates: start: 20101026, end: 20101030
  22. DEXAMETHASONE [Suspect]
     Route: 041
     Dates: start: 20101125, end: 20101130
  23. DEXAMETHASONE [Suspect]
     Route: 041
     Dates: start: 20110104, end: 20110117
  24. FAMOTIDINE [Concomitant]
     Route: 048
     Dates: start: 20100910, end: 20110103
  25. PREDNISOLONE [Suspect]
     Route: 048
     Dates: start: 20100919, end: 20100921
  26. PREDNISOLONE [Suspect]
     Route: 048
     Dates: start: 20101001, end: 20101119
  27. PREDNISOLONE [Suspect]
     Route: 048
     Dates: start: 20101221, end: 20110103
  28. DEXAMETHASONE [Suspect]
     Route: 041
     Dates: start: 20101018, end: 20101025
  29. DEXAMETHASONE [Suspect]
     Route: 041
     Dates: start: 20101106, end: 20101108
  30. METHYLPREDNISOLONE [Suspect]
     Route: 042
     Dates: start: 20100922, end: 20100924
  31. DIDRONEL [Concomitant]
     Route: 048
     Dates: start: 20101210, end: 20101224
  32. TOCILIZUMAB [Suspect]
     Indication: JUVENILE ARTHRITIS
     Route: 041
     Dates: start: 20101109, end: 20101109
  33. SANDIMMUNE [Suspect]
     Route: 041
     Dates: start: 20101119, end: 20101122
  34. SANDIMMUNE [Suspect]
     Route: 041
     Dates: start: 20101123, end: 20101210
  35. METHYLPREDNISOLONE [Suspect]
     Route: 042
     Dates: start: 20100915, end: 20100918
  36. DIDRONEL [Concomitant]
     Route: 048
     Dates: start: 20101210, end: 20101224
  37. TOCILIZUMAB [Suspect]
     Route: 041
     Dates: start: 20101214, end: 20101228
  38. SANDIMMUNE [Suspect]
     Indication: JUVENILE ARTHRITIS
     Route: 041
     Dates: start: 20100924, end: 20100926
  39. SANDIMMUNE [Suspect]
     Route: 041
     Dates: start: 20100927, end: 20100930
  40. SANDIMMUNE [Suspect]
     Route: 041
     Dates: start: 20101008, end: 20101012
  41. DEXAMETHASONE [Suspect]
     Route: 041
     Dates: start: 20101228, end: 20110103

REACTIONS (14)
  - RENAL FAILURE [None]
  - TOXIC ENCEPHALOPATHY [None]
  - HYPERGLYCAEMIA [None]
  - ABDOMINAL DISCOMFORT [None]
  - RESPIRATORY FAILURE [None]
  - HEPATIC FAILURE [None]
  - CYTOMEGALOVIRUS TEST POSITIVE [None]
  - HYPERLIPIDAEMIA [None]
  - VASCULITIS [None]
  - HISTIOCYTOSIS HAEMATOPHAGIC [None]
  - CARDIAC FAILURE [None]
  - ESCHERICHIA BACTERAEMIA [None]
  - PLATELET COUNT DECREASED [None]
  - PLEURAL EFFUSION [None]
